FAERS Safety Report 11157649 (Version 2)
Quarter: 2015Q2

REPORT INFORMATION
  Report Type: Spontaneous
  Country: US (occurrence: None)
  Receive Date: 20150601
  Receipt Date: 20150616
  Transmission Date: 20150821
  Serious: Yes (Hospitalization, Other)
  Sender: FDA-Public Use
  Company Number: US-2015EGA000014

PATIENT
  Age: 26 Year
  Sex: Male

DRUGS (2)
  1. OXYCODONE HYDROCHLORIDE (OXYCODONE HYDROCHLORIDE) [Suspect]
     Active Substance: OXYCODONE HYDROCHLORIDE
     Indication: PRODUCT USED FOR UNKNOWN INDICATION
  2. ETANERCEPT (ETANERCEPT) [Concomitant]
     Active Substance: ETANERCEPT

REACTIONS (18)
  - Blood chloride decreased [None]
  - Mean cell haemoglobin concentration increased [None]
  - Diarrhoea [None]
  - Haematocrit decreased [None]
  - Red blood cell count decreased [None]
  - Blood urea increased [None]
  - Monocyte count increased [None]
  - Neutrophil count decreased [None]
  - Haemoglobin decreased [None]
  - Alanine aminotransferase increased [None]
  - Hyponatraemia [None]
  - Nausea [None]
  - Hypokalaemia [None]
  - Vomiting [None]
  - Aspartate aminotransferase increased [None]
  - Basophil count increased [None]
  - Abdominal pain [None]
  - Protein total increased [None]

NARRATIVE: CASE EVENT DATE: 20150227
